FAERS Safety Report 7230412-2 (Version None)
Quarter: 2011Q1

REPORT INFORMATION
  Report Type: 
  Country: None (occurrence: None)
  Receive Date: 20110118
  Receipt Date: 20110111
  Transmission Date: 20110831
  Serious: Yes (Other)
  Sender: FDA-Public Use
  Company Number: GB-JNJFOC-20110103102

PATIENT
  Age: 50 Year
  Sex: Female

DRUGS (3)
  1. IMODIUM [Suspect]
     Indication: PRODUCT USED FOR UNKNOWN INDICATION
     Route: 048
  2. IMODIUM INSTANT MELT [Suspect]
     Indication: PRODUCT USED FOR UNKNOWN INDICATION
     Route: 048
  3. IMODIUM INSTANT MELT [Suspect]
     Route: 048

REACTIONS (2)
  - IRRITABLE BOWEL SYNDROME [None]
  - MENIERE'S DISEASE [None]
